FAERS Safety Report 8896263 (Version 2)
Quarter: 2013Q1

REPORT INFORMATION
  Report Type: Spontaneous
  Country: FR (occurrence: None)
  Receive Date: 20121031
  Receipt Date: 20121127
  Transmission Date: 20140127
  Serious: Yes (Other)
  Sender: FDA-Public Use
  Company Number: FR-009884

PATIENT
  Age: 92 Year
  Sex: Male

DRUGS (5)
  1. DEGARELIX [Suspect]
     Indication: PROSTATE CANCER
     Route: 058
     Dates: start: 20121016, end: 20121016
  2. TRIATEC /00116401/ [Concomitant]
  3. NIDREL [Concomitant]
  4. LIPANTHYL [Concomitant]
  5. HEXAQUINE [Concomitant]

REACTIONS (5)
  - Injection site pain [None]
  - Malaise [None]
  - Fatigue [None]
  - Subileus [None]
  - Vomiting [None]
